FAERS Safety Report 17825792 (Version 1)
Quarter: 2020Q2

REPORT INFORMATION
  Report Type: Report from Study
  Country: US (occurrence: US)
  Receive Date: 20200526
  Receipt Date: 20200526
  Transmission Date: 20200714
  Serious: Yes (Hospitalization)
  Sender: FDA-Public Use
  Company Number: US-TEVA-2020-US-1239285

PATIENT
  Age: 23 Year
  Sex: Female

DRUGS (3)
  1. ARSENIC TRIOXIDE. [Concomitant]
     Active Substance: ARSENIC TRIOXIDE
     Indication: ACUTE PROMYELOCYTIC LEUKAEMIA
     Dosage: 15 MG/KG DAILY; AT THE TIME OF REPORT, SO FAR RECEIVED TWO CONSOLIDATION CYCLES
     Route: 065
  2. ALL-TRANS RETINOIC ACID [Suspect]
     Active Substance: TRETINOIN
     Indication: ACUTE PROMYELOCYTIC LEUKAEMIA
     Dosage: 45 MG/M2 DAILY; TWO DIVIDED DOSES
     Route: 065
  3. VANCOMYCIN [Suspect]
     Active Substance: VANCOMYCIN
     Indication: ACUTE PROMYELOCYTIC LEUKAEMIA
     Route: 065

REACTIONS (4)
  - Idiopathic intracranial hypertension [Unknown]
  - Visual impairment [Unknown]
  - Streptococcal bacteraemia [Recovered/Resolved]
  - Renal failure [Recovered/Resolved]
